FAERS Safety Report 24113478 (Version 3)
Quarter: 2024Q3

REPORT INFORMATION
  Report Type: Spontaneous
  Country: US (occurrence: US)
  Receive Date: 20240720
  Receipt Date: 20240725
  Transmission Date: 20241016
  Serious: No
  Sender: NOVARTIS
  Company Number: US-002147023-NVSC2024US146308

PATIENT
  Sex: Female

DRUGS (1)
  1. KESIMPTA [Suspect]
     Active Substance: OFATUMUMAB
     Indication: Product used for unknown indication
     Dosage: 20 MG (EVERY 28 OR 30 DAYS)
     Route: 065

REACTIONS (4)
  - Rhinorrhoea [Unknown]
  - Device leakage [Unknown]
  - Nasopharyngitis [Recovered/Resolved]
  - Injection site pain [Unknown]
